FAERS Safety Report 7580383 (Version 16)
Quarter: 2013Q1

REPORT INFORMATION
  Report Type: Spontaneous
  Country: US (occurrence: US)
  Receive Date: 20100910
  Receipt Date: 20130108
  Transmission Date: 20140127
  Serious: Yes (Death, Hospitalization, Congenital Anomaly, Other)
  Sender: FDA-Public Use
  Company Number: US-PFIZER INC-2010109653

PATIENT
  Sex: Female
  Weight: 2.4 kg

DRUGS (23)
  1. ZOLOFT [Suspect]
     Indication: DEPRESSION
     Dosage: UNK
     Route: 064
     Dates: start: 2002, end: 2009
  2. ZOLOFT [Suspect]
     Indication: ANXIETY
     Dosage: 25 MG, 1X/DAY
     Route: 064
     Dates: start: 200502, end: 20050227
  3. ZOLOFT [Suspect]
     Dosage: 50 MG, 1X/DAY
     Route: 064
     Dates: start: 20050228
  4. ZOLOFT [Suspect]
     Dosage: UNK
     Route: 064
     Dates: start: 20080228
  5. NEXIUM [Concomitant]
     Dosage: 40 MG, DAY
     Route: 064
  6. ACETYLSALICYLIC ACID [Concomitant]
     Indication: TYPE 2 DIABETES MELLITUS
     Dosage: 81 MG, DAY
     Route: 064
  7. TOBREX [Concomitant]
     Indication: CONJUNCTIVITIS
     Dosage: ONE DROP EVERY 4-6HOURS AS NEEDED
     Route: 064
     Dates: start: 20090627
  8. FLUCONAZOLE [Concomitant]
     Dosage: 150 MG, WEEKLY (150 MG TABLETS, ONE TABLET WEEKLY FOR TWO WEEKS)
     Route: 064
     Dates: start: 20090610, end: 200906
  9. AUGMENTIN [Concomitant]
     Indication: ACUTE SINUSITIS
     Dosage: TWO TABLETS PER DAY
     Route: 064
  10. MIDRIN [Concomitant]
     Dosage: UNK
     Route: 064
  11. ORTHO TRI CYCLEN [Concomitant]
     Dosage: UNK
     Route: 064
  12. AMOX [Concomitant]
     Dosage: 875-125 MG
     Route: 064
     Dates: start: 20090622
  13. FOLIC ACID [Concomitant]
     Dosage: 1 MG, UNK
     Route: 064
     Dates: start: 20090807
  14. AZITHROMYCIN [Concomitant]
     Dosage: 250 MG, UNK
     Route: 064
     Dates: start: 20090817
  15. SERTRALINE [Concomitant]
     Dosage: 50 MG, 1X/DAY (50 MG TABLETS, ONE TABLET ONCE DAILY)
     Route: 064
     Dates: start: 20090527
  16. ERYTHROMYCIN [Concomitant]
     Dosage: APPLIED TO EACH EYELID EVERY NIGHT AT BED TIME
     Route: 064
     Dates: start: 20090622
  17. TYLENOL [Concomitant]
     Dosage: 325-650MG ORALLY EVERY SIX HOURS AS NEEDED
     Route: 064
     Dates: start: 20100110, end: 20100211
  18. NOVOLIN [Concomitant]
     Dosage: 10 IU, 1X/DAY AT BED TIME
     Route: 064
     Dates: start: 20100118, end: 20100205
  19. PRENATAL VITAMINS [Concomitant]
     Dosage: UNK, ONE TABLET DAILY
     Route: 064
     Dates: start: 20100121, end: 20100211
  20. SENOKOT-S [Concomitant]
     Dosage: 3.6-50MG TABLET, TWICE DAILY
     Route: 064
     Dates: start: 20100121, end: 20100211
  21. NOVOLOG [Concomitant]
     Dosage: 5 IU, UNK
     Route: 064
     Dates: start: 20100122, end: 20100122
  22. CALCIUM [Concomitant]
     Dosage: UNK
     Route: 064
  23. MULTIVITAMINS [Concomitant]
     Dosage: UNK
     Route: 064

REACTIONS (17)
  - Foetal exposure during pregnancy [Fatal]
  - Hepatic vein thrombosis [Fatal]
  - Exomphalos [Fatal]
  - Patent ductus arteriosus [Unknown]
  - Sepsis [Unknown]
  - Heart disease congenital [Recovered/Resolved]
  - Jaundice [Recovered/Resolved]
  - Cardiac arrest [Unknown]
  - Ventricular tachycardia [Unknown]
  - Anaemia [Unknown]
  - Cleft lip [Unknown]
  - Growth retardation [Unknown]
  - Heart rate decreased [Unknown]
  - Hyperglycaemia [Recovered/Resolved]
  - Ascites [Unknown]
  - Intestinal dilatation [Unknown]
  - Cardiac malposition [Unknown]
